FAERS Safety Report 22166584 (Version 1)
Quarter: 2023Q2

REPORT INFORMATION
  Report Type: Spontaneous
  Country: US (occurrence: US)
  Receive Date: 20230403
  Receipt Date: 20230403
  Transmission Date: 20230722
  Serious: No
  Sender: FDA-Public Use
  Company Number: US-MAYNE PHARMA-2022MYN001164

PATIENT

DRUGS (2)
  1. LIOTHYRONINE [Suspect]
     Active Substance: LIOTHYRONINE
     Indication: Thyroid disorder
     Dosage: 25 MCG, QD X 4 DAYS
     Route: 048
     Dates: start: 20220622
  2. LIOTHYRONINE [Suspect]
     Active Substance: LIOTHYRONINE
     Indication: Renal impairment
     Dosage: 50 MCG ON DAY5
     Route: 048

REACTIONS (2)
  - Heart rate decreased [Unknown]
  - Product taste abnormal [Not Recovered/Not Resolved]
